FAERS Safety Report 6386803-5 (Version None)
Quarter: 2009Q4

REPORT INFORMATION
  Report Type: 
  Country: None (occurrence: None)
  Receive Date: 20091002
  Receipt Date: 20090810
  Transmission Date: 20100525
  Serious: Yes (Hospitalization)
  Sender: FDA-Public Use
  Company Number: B0589250B

PATIENT

DRUGS (2)
  1. CLAMOXYL [Suspect]
     Indication: STREPTOCOCCAL INFECTION
  2. CEFAZOLIN [Suspect]
     Indication: PROPHYLAXIS

REACTIONS (3)
  - DRUG EXPOSURE DURING PREGNANCY [None]
  - RESPIRATORY DISTRESS [None]
  - SEPSIS NEONATAL [None]
